FAERS Safety Report 9830779 (Version 2)
Quarter: 2014Q1

REPORT INFORMATION
  Report Type: Spontaneous
  Country: US (occurrence: US)
  Receive Date: 20140120
  Receipt Date: 20140327
  Transmission Date: 20141002
  Serious: Yes (Hospitalization, Other)
  Sender: FDA-Public Use
  Company Number: US-ELI_LILLY_AND_COMPANY-US201401005153

PATIENT
  Age: 46 Year
  Sex: Male
  Weight: 72.56 kg

DRUGS (14)
  1. CIALIS [Suspect]
     Indication: ERECTILE DYSFUNCTION
     Dosage: 20 MG, PRN
     Route: 065
     Dates: start: 2007
  2. CIALIS [Suspect]
     Dosage: 1 DF, UNKNOWN
     Route: 065
  3. CIALIS [Suspect]
     Dosage: 5 MG, PRN
     Route: 048
     Dates: start: 20140114
  4. VERAPAMIL [Concomitant]
     Indication: PRODUCT USED FOR UNKNOWN INDICATION
     Dosage: 120 MG, EACH MORNING
     Route: 065
  5. PLAVIX [Concomitant]
     Indication: PRODUCT USED FOR UNKNOWN INDICATION
     Dosage: 75 MG, QD
     Route: 065
  6. ASPIRIN [Concomitant]
     Indication: PRODUCT USED FOR UNKNOWN INDICATION
     Dosage: 1 DF, QD
     Route: 065
  7. ZETIA [Concomitant]
     Indication: PRODUCT USED FOR UNKNOWN INDICATION
     Dosage: 10 MG, QD
     Route: 065
  8. L-ARGININE                         /00126101/ [Concomitant]
     Dosage: 1000 MG, TID
  9. FOLIC ACID [Concomitant]
     Dosage: 400 MG, QD
  10. OMEGA 3                            /01334101/ [Concomitant]
     Dosage: 1000 MG, QD
  11. NIACIN [Concomitant]
     Dosage: 250 MG, QD
  12. VITAMIN B COMPLEX (BECOTIN) [Concomitant]
     Dosage: 50 MG, QD
  13. NITROSTAT [Concomitant]
     Indication: CHEST PAIN
     Dosage: 0.4 MG, PRN
     Route: 060
  14. LESCOL XL [Concomitant]
     Dosage: 80 MG, EACH EVENING

REACTIONS (2)
  - Coronary artery disease [Recovered/Resolved with Sequelae]
  - Wrong technique in drug usage process [Unknown]
